FAERS Safety Report 6370879-5 (Version None)
Quarter: 2009Q3

REPORT INFORMATION
  Report Type: 
  Country: None (occurrence: None)
  Receive Date: 20090923
  Receipt Date: 20070430
  Transmission Date: 20100115
  Serious: Yes (Hospitalization)
  Sender: FDA-Public Use
  Company Number: US-ASTRAZENECA-2006UW23622

PATIENT
  Age: 12268 Day
  Sex: Female
  Weight: 159.2 kg

DRUGS (19)
  1. SEROQUEL [Suspect]
     Indication: BIPOLAR DISORDER
     Dosage: 25MG TO 500MG
     Route: 048
     Dates: start: 20020311
  2. SEROQUEL [Suspect]
     Indication: INSOMNIA
     Dosage: 25MG TO 500MG
     Route: 048
     Dates: start: 20020311
  3. ZYPREXA [Suspect]
  4. GEODON [Concomitant]
     Dates: start: 20060101
  5. HALDOL [Concomitant]
  6. RISPERDAL [Concomitant]
  7. OLANZAPINE [Concomitant]
     Dates: start: 20020101
  8. LITHIUM [Concomitant]
     Route: 048
  9. XANAX [Concomitant]
     Route: 048
  10. WELLBUTRIN [Concomitant]
     Route: 048
  11. SYNTHROID [Concomitant]
     Route: 048
  12. CELEXA [Concomitant]
     Route: 065
  13. ZOMIG [Concomitant]
     Dosage: 2.5 MG EVERY 2 HOURS P.R.N
     Route: 048
  14. GLUCOPHAGE [Concomitant]
     Dosage: 500 MG TWO TAB AFTER DINNER
     Route: 048
  15. HUMALOG [Concomitant]
     Dosage: TITRATING DOSE FROM 5 TO 20 UNITS
     Route: 065
  16. TRAZODONE [Concomitant]
     Route: 048
  17. TOPAMAX [Concomitant]
     Route: 048
  18. FLUOXETINE [Concomitant]
     Route: 065
  19. SONATA [Concomitant]
     Route: 048

REACTIONS (3)
  - DIABETES MELLITUS [None]
  - DIABETIC KETOACIDOSIS [None]
  - TYPE 2 DIABETES MELLITUS [None]
